FAERS Safety Report 13395673 (Version 2)
Quarter: 2017Q2

REPORT INFORMATION
  Report Type: Report from Study
  Country: US (occurrence: US)
  Receive Date: 20170403
  Receipt Date: 20170413
  Transmission Date: 20170830
  Serious: Yes (Hospitalization)
  Sender: FDA-Public Use
  Company Number: US-BAYER-2017-034059

PATIENT
  Age: 81 Year
  Sex: Female

DRUGS (1)
  1. STIVARGA [Suspect]
     Active Substance: REGORAFENIB
     Indication: SOFT TISSUE SARCOMA
     Dosage: 120 MG, QD
     Route: 048
     Dates: start: 20160415, end: 201703

REACTIONS (7)
  - Off label use [None]
  - Surgery [None]
  - Loss of consciousness [None]
  - Fatigue [None]
  - Alopecia [None]
  - Depressed level of consciousness [None]
  - Cerebrovascular accident [None]

NARRATIVE: CASE EVENT DATE: 2017
